FAERS Safety Report 16306323 (Version 2)
Quarter: 2021Q1

REPORT INFORMATION
  Report Type: Spontaneous
  Country: US (occurrence: US)
  Receive Date: 20190513
  Receipt Date: 20210318
  Transmission Date: 20210419
  Serious: Yes (Other)
  Sender: FDA-Public Use
  Company Number: US-ASTRAZENECA-2019SE64143

PATIENT
  Age: 42 Year
  Sex: Female
  Weight: 101.2 kg

DRUGS (76)
  1. NEXIUM [Suspect]
     Active Substance: ESOMEPRAZOLE MAGNESIUM
     Indication: GASTROOESOPHAGEAL REFLUX DISEASE
     Dosage: GENERIC
     Route: 065
     Dates: start: 2015
  2. PREVACID [Suspect]
     Active Substance: LANSOPRAZOLE
     Indication: GASTROOESOPHAGEAL REFLUX DISEASE
     Route: 065
     Dates: start: 1999, end: 2015
  3. LEVOFLOXACIN. [Concomitant]
     Active Substance: LEVOFLOXACIN
     Indication: INFECTION
  4. ACETAMINOPHEN. [Concomitant]
     Active Substance: ACETAMINOPHEN
     Indication: PAIN
  5. DOXYCYCLINE HYCLATE. [Concomitant]
     Active Substance: DOXYCYCLINE HYCLATE
  6. KEFLEX [Concomitant]
     Active Substance: CEPHALEXIN
  7. ALBUTEROL SULFATE. [Concomitant]
     Active Substance: ALBUTEROL SULFATE
  8. METRONIDAZOLE. [Concomitant]
     Active Substance: METRONIDAZOLE
  9. NEXIUM [Suspect]
     Active Substance: ESOMEPRAZOLE MAGNESIUM
     Indication: GASTROOESOPHAGEAL REFLUX DISEASE
     Route: 048
     Dates: start: 2007, end: 2017
  10. PRILOSEC OTC [Suspect]
     Active Substance: OMEPRAZOLE MAGNESIUM
     Indication: GASTROOESOPHAGEAL REFLUX DISEASE
     Route: 048
     Dates: start: 200712, end: 2016
  11. NAPROXEN. [Concomitant]
     Active Substance: NAPROXEN
     Indication: PAIN
  12. AMOXICILLIN. [Concomitant]
     Active Substance: AMOXICILLIN
     Indication: INFECTION
  13. IBUPROFEN. [Concomitant]
     Active Substance: IBUPROFEN
     Indication: PAIN
  14. FAMOTIDINE. [Concomitant]
     Active Substance: FAMOTIDINE
  15. ALBUTEROL. [Concomitant]
     Active Substance: ALBUTEROL
  16. FLAGYL [Concomitant]
     Active Substance: METRONIDAZOLE\METRONIDAZOLE HYDROCHLORIDE
  17. SULFAMETHOXAZOLE [Concomitant]
     Active Substance: SULFAMETHOXAZOLE
  18. LABETALOL [Concomitant]
     Active Substance: LABETALOL\LABETALOL HYDROCHLORIDE
  19. FAMCICLOVIR. [Concomitant]
     Active Substance: FAMCICLOVIR
  20. PRILOSEC [Suspect]
     Active Substance: OMEPRAZOLE MAGNESIUM
     Indication: GASTROOESOPHAGEAL REFLUX DISEASE
     Route: 048
     Dates: start: 199901, end: 201501
  21. PREDNISONE. [Concomitant]
     Active Substance: PREDNISONE
  22. LIDOCAINE. [Concomitant]
     Active Substance: LIDOCAINE
  23. GLUCAGON. [Concomitant]
     Active Substance: GLUCAGON
  24. CARBON MONOXIDE [Concomitant]
     Active Substance: CARBON MONOXIDE
  25. OXYMORPHONE [Concomitant]
     Active Substance: OXYMORPHONE
  26. PREVACID [Suspect]
     Active Substance: LANSOPRAZOLE
     Indication: GASTROOESOPHAGEAL REFLUX DISEASE
     Dosage: GENERIC
     Route: 065
     Dates: start: 2010
  27. MELOXICAM. [Concomitant]
     Active Substance: MELOXICAM
     Indication: PAIN
  28. AZITHROMYCIN ANHYDROUS. [Concomitant]
     Active Substance: AZITHROMYCIN ANHYDROUS
     Indication: INFECTION
  29. CIPROFLOXACIN. [Concomitant]
     Active Substance: CIPROFLOXACIN
     Indication: INFECTION
  30. TMP/SMZ [Concomitant]
     Indication: INFECTION
  31. MAGNESIUM OXIDE. [Concomitant]
     Active Substance: MAGNESIUM OXIDE
  32. AMBIEN [Concomitant]
     Active Substance: ZOLPIDEM TARTRATE
  33. ETHIODOL [Concomitant]
     Active Substance: ETHIODIZED OIL
  34. MARCAINE [Concomitant]
     Active Substance: BUPIVACAINE HYDROCHLORIDE
  35. NITROGLYCERIN. [Concomitant]
     Active Substance: NITROGLYCERIN
  36. BISACODYL. [Concomitant]
     Active Substance: BISACODYL
  37. CAFFEINE. [Concomitant]
     Active Substance: CAFFEINE
  38. METHADONE [Concomitant]
     Active Substance: METHADONE HYDROCHLORIDE
  39. NEXIUM [Suspect]
     Active Substance: ESOMEPRAZOLE MAGNESIUM
     Indication: GASTROOESOPHAGEAL REFLUX DISEASE
     Route: 048
     Dates: start: 199901, end: 201501
  40. AMITRIPTYLINE [Concomitant]
     Active Substance: AMITRIPTYLINE
     Indication: PAIN
  41. VITAMIN D [Concomitant]
     Active Substance: VITAMIN D NOS
     Indication: VITAMIN D DEFICIENCY
  42. RANITIDINE. [Concomitant]
     Active Substance: RANITIDINE
  43. ADVAIR DISKUS [Concomitant]
     Active Substance: FLUTICASONE PROPIONATE\SALMETEROL XINAFOATE
  44. FLUTICASONE. [Concomitant]
     Active Substance: FLUTICASONE
  45. LORAZEPAM. [Concomitant]
     Active Substance: LORAZEPAM
  46. ZINC. [Concomitant]
     Active Substance: ZINC
  47. VERAPAMIL [Concomitant]
     Active Substance: VERAPAMIL HYDROCHLORIDE
  48. SODIUM CHLORIDE. [Concomitant]
     Active Substance: SODIUM CHLORIDE
  49. METOPROLOL TARTRATE. [Concomitant]
     Active Substance: METOPROLOL TARTRATE
  50. NICOTINE. [Concomitant]
     Active Substance: NICOTINE
  51. PRILOSEC [Suspect]
     Active Substance: OMEPRAZOLE MAGNESIUM
     Indication: GASTROOESOPHAGEAL REFLUX DISEASE
     Dosage: GENERIC
     Route: 065
     Dates: start: 2015
  52. ZOFRAN [Concomitant]
     Active Substance: ONDANSETRON HYDROCHLORIDE
  53. CODEINE?GUAIFENESIN [Concomitant]
     Active Substance: CODEINE PHOSPHATE\GUAIFENESIN
  54. DEXTROSE. [Concomitant]
     Active Substance: DEXTROSE
  55. KETOROLAC [Concomitant]
     Active Substance: KETOROLAC TROMETHAMINE
  56. COCAINE [Concomitant]
     Active Substance: COCAINE
  57. OXYCODONE [Concomitant]
     Active Substance: OXYCODONE
  58. MEDROL [Concomitant]
     Active Substance: METHYLPREDNISOLONE
  59. PRILOSEC [Suspect]
     Active Substance: OMEPRAZOLE MAGNESIUM
     Indication: GASTROOESOPHAGEAL REFLUX DISEASE
     Route: 048
     Dates: start: 2005, end: 2016
  60. PREVACID [Suspect]
     Active Substance: LANSOPRAZOLE
     Indication: GASTROOESOPHAGEAL REFLUX DISEASE
     Route: 065
     Dates: start: 199901, end: 201501
  61. BENADRYL [Concomitant]
     Active Substance: DIPHENHYDRAMINE HYDROCHLORIDE
     Indication: MULTIPLE ALLERGIES
  62. ZANTAC [Concomitant]
     Active Substance: RANITIDINE HYDROCHLORIDE
  63. DIFLUCAN [Concomitant]
     Active Substance: FLUCONAZOLE
  64. HYDROCODONE?ACETAMINOPHEN [Concomitant]
     Active Substance: ACETAMINOPHEN\HYDROCODONE
  65. TEMAZEPAM. [Concomitant]
     Active Substance: TEMAZEPAM
  66. NARCAN [Concomitant]
     Active Substance: NALOXONE HYDROCHLORIDE
  67. HYDROMORPHONE [Concomitant]
     Active Substance: HYDROMORPHONE
  68. DOXYCYCLINE. [Concomitant]
     Active Substance: DOXYCYCLINE
     Indication: INFECTION
  69. CEFUROXIME. [Concomitant]
     Active Substance: CEFUROXIME
     Indication: INFECTION
  70. POTASSIUM CHLORIDE. [Concomitant]
     Active Substance: POTASSIUM CHLORIDE
  71. EPINEPHRINE. [Concomitant]
     Active Substance: EPINEPHRINE
  72. SODIUM BICARBONATE. [Concomitant]
     Active Substance: SODIUM BICARBONATE
  73. DOBUTAMINE [Concomitant]
     Active Substance: DOBUTAMINE HYDROCHLORIDE
  74. HYDROCORTISONE. [Concomitant]
     Active Substance: HYDROCORTISONE
  75. ATROPINE SULFATE. [Concomitant]
     Active Substance: ATROPINE SULFATE
  76. HEPARIN [Concomitant]
     Active Substance: HEPARIN SODIUM

REACTIONS (3)
  - Acute kidney injury [Not Recovered/Not Resolved]
  - Chronic kidney disease [Not Recovered/Not Resolved]
  - Gastrooesophageal reflux disease [Not Recovered/Not Resolved]

NARRATIVE: CASE EVENT DATE: 2013
